FAERS Safety Report 8764731 (Version 3)
Quarter: 2014Q1

REPORT INFORMATION
  Report Type: Spontaneous
  Country: PT (occurrence: PT)
  Receive Date: 20120831
  Receipt Date: 20140320
  Transmission Date: 20141002
  Serious: Yes (Other)
  Sender: FDA-Public Use
  Company Number: PT-009507513-1107PRT00010

PATIENT
  Age: 33 Year
  Sex: Female

DRUGS (5)
  1. ISENTRESS [Suspect]
     Indication: HIV INFECTION
     Dosage: 400 MG, BID
     Route: 048
     Dates: start: 20110214
  2. TRUVADA [Concomitant]
     Indication: HIV INFECTION
     Route: 065
     Dates: start: 20110214
  3. NORVIR [Concomitant]
     Indication: HIV INFECTION
     Dosage: 100 MG, BID
     Route: 048
     Dates: start: 20110214
  4. PREZISTA [Concomitant]
     Indication: HIV INFECTION
     Dosage: 600 MG, BID
     Route: 048
     Dates: start: 20110214
  5. RETROVIR [Concomitant]
     Indication: HIV INFECTION
     Dosage: UNK
     Dates: start: 20110725, end: 20110725

REACTIONS (3)
  - Caesarean section [Unknown]
  - Anaemia [Not Recovered/Not Resolved]
  - Exposure during pregnancy [Recovered/Resolved]
